FAERS Safety Report 7323167-4 (Version None)
Quarter: 2011Q1

REPORT INFORMATION
  Report Type: 
  Country: None (occurrence: None)
  Receive Date: 20110216
  Receipt Date: 20110202
  Transmission Date: 20110831
  Serious: Yes (Hospitalization, Other)
  Sender: FDA-Public Use
  Company Number: UTC-005092

PATIENT
  Age: 61 Year
  Sex: Female
  Weight: 48.6 kg

DRUGS (3)
  1. LETAIRIS (AMBRISENTAN) [Concomitant]
  2. REMODULIN [Suspect]
     Indication: PULMONARY HYPERTENSION
     Dosage: 26.64 UG/KG (0.0185 UG/KG,1 IN 1 MIN),SUBCUTANEOUS
     Route: 058
     Dates: start: 20101202
  3. ADCIRCA (WARFARIN SODIUM) [Concomitant]

REACTIONS (3)
  - LOSS OF CONSCIOUSNESS [None]
  - RECTAL HAEMORRHAGE [None]
  - CAROTID ARTERY OCCLUSION [None]
